FAERS Safety Report 18728685 (Version 9)
Quarter: 2021Q3

REPORT INFORMATION
  Report Type: Report from Study
  Country: CA (occurrence: CA)
  Receive Date: 20210112
  Receipt Date: 20210726
  Transmission Date: 20211014
  Serious: Yes (Hospitalization, Other)
  Sender: FDA-Public Use
  Company Number: CA-IPSEN BIOPHARMACEUTICALS, INC.-2021-00627

PATIENT
  Age: 79 Year
  Sex: Male

DRUGS (8)
  1. LASIX [Concomitant]
     Active Substance: FUROSEMIDE
     Dosage: 40 MG OD II
     Dates: start: 20210419
  2. FERAMAX [Concomitant]
     Active Substance: IRON\POLYSACCHARIDES
     Route: 042
  3. PANTOLOC [Concomitant]
     Active Substance: PANTOPRAZOLE SODIUM
  4. CBD [Concomitant]
     Active Substance: CANNABIDIOL
     Indication: HERPES ZOSTER
     Dosage: PRN (QID), TOPICALLY
     Route: 061
  5. SOMATULINE AUTOGEL [Suspect]
     Active Substance: LANREOTIDE ACETATE
     Indication: NEUROENDOCRINE TUMOUR
     Dosage: Q4 WEEKS
     Route: 058
     Dates: start: 20190620
  6. ACETAMINOPHEN. [Concomitant]
     Active Substance: ACETAMINOPHEN
     Indication: HERPES ZOSTER
     Dosage: 1?2 TABLETS Q4?6HR PRN
  7. TYLENOL [Concomitant]
     Active Substance: ACETAMINOPHEN
     Indication: HERPES ZOSTER
     Dosage: ES PRN, MAY BE BID
  8. GLICLAZIDE [Concomitant]
     Active Substance: GLICLAZIDE

REACTIONS (20)
  - Flatulence [Not Recovered/Not Resolved]
  - Malaise [Recovering/Resolving]
  - Asthenia [Not Recovered/Not Resolved]
  - Abdominal distension [Not Recovered/Not Resolved]
  - Gastric dilatation [Recovering/Resolving]
  - Dyspnoea [Recovering/Resolving]
  - Internal haemorrhage [Not Recovered/Not Resolved]
  - Abdominal pain upper [Not Recovered/Not Resolved]
  - Unevaluable event [Not Recovered/Not Resolved]
  - Pain [Recovering/Resolving]
  - Abdominal discomfort [Recovering/Resolving]
  - Renal mass [Unknown]
  - Diarrhoea [Not Recovered/Not Resolved]
  - Dehydration [Not Recovered/Not Resolved]
  - Hypotension [Not Recovered/Not Resolved]
  - Pallor [Not Recovered/Not Resolved]
  - Eructation [Not Recovered/Not Resolved]
  - Gastrooesophageal reflux disease [Not Recovered/Not Resolved]
  - Decreased appetite [Recovering/Resolving]
  - Product dose omission issue [Unknown]

NARRATIVE: CASE EVENT DATE: 20201225
